FAERS Safety Report 10202263 (Version 1)
Quarter: 2014Q2

REPORT INFORMATION
  Report Type: Report from Study
  Country: BD (occurrence: BD)
  Receive Date: 20140528
  Receipt Date: 20140528
  Transmission Date: 20141212
  Serious: Yes (Death)
  Sender: FDA-Public Use
  Company Number: PHHY2014BD065144

PATIENT
  Age: 65 Year
  Sex: Female

DRUGS (1)
  1. ACLASTA [Suspect]
     Indication: OSTEOPOROSIS
     Dosage: 05 MG, ONCE YEARLY
     Route: 042
     Dates: start: 20140120

REACTIONS (3)
  - Lip infection [Fatal]
  - Pharyngitis [Fatal]
  - Oedema peripheral [Fatal]
